FAERS Safety Report 8238580-0 (Version None)
Quarter: 2012Q1

REPORT INFORMATION
  Report Type: 
  Country: None (occurrence: None)
  Receive Date: 20120327
  Receipt Date: 20120323
  Transmission Date: 20120608
  Serious: Yes (Hospitalization, Other)
  Sender: FDA-Public Use
  Company Number: FR-ABBOTT-10P-056-0687945-00

PATIENT
  Age: 26 Year
  Sex: Female

DRUGS (6)
  1. DOXYLAMINE SUCCINATE [Suspect]
     Indication: TOXICITY TO VARIOUS AGENTS
  2. KEPPRA [Suspect]
     Indication: EPILEPSY
     Dates: end: 20100501
  3. URBANYL [Suspect]
     Indication: EPILEPSY
     Route: 048
     Dates: end: 20100501
  4. CIPROFLOXACIN [Concomitant]
     Indication: PRODUCT USED FOR UNKNOWN INDICATION
     Dates: start: 20100522, end: 20100522
  5. DOXYLAMINE SUCCINATE [Suspect]
     Indication: INTENTIONAL OVERDOSE
     Route: 048
     Dates: start: 20100522, end: 20100522
  6. DEPAKENE [Suspect]
     Indication: EPILEPSY
     Route: 048
     Dates: end: 20100501

REACTIONS (2)
  - CONVULSION [None]
  - TOXICITY TO VARIOUS AGENTS [None]
